FAERS Safety Report 9073890 (Version 1)
Quarter: 2013Q1

REPORT INFORMATION
  Report Type: Report from Study
  Country: US (occurrence: US)
  Receive Date: 20130129
  Receipt Date: 20130129
  Transmission Date: 20140127
  Serious: No
  Sender: FDA-Public Use
  Company Number: US-ABBOTT-12P-163-0900614-00

PATIENT
  Sex: Female
  Weight: 97.61 kg

DRUGS (8)
  1. HUMIRA 40 MG/0.8 ML PEN [Suspect]
     Indication: RHEUMATOID ARTHRITIS
     Dates: start: 20110804
  2. CELEXA [Concomitant]
     Indication: DEPRESSION
  3. LIPITOR [Concomitant]
     Indication: PROPHYLAXIS
  4. LIPITOR [Concomitant]
     Indication: FAMILIAL RISK FACTOR
  5. PREMARIN [Concomitant]
     Indication: MENOPAUSE
  6. VESICARE [Concomitant]
     Indication: BLADDER DISORDER
  7. ASPIRIN [Concomitant]
     Indication: PRODUCT USED FOR UNKNOWN INDICATION
  8. VITAMINS [Concomitant]
     Indication: PRODUCT USED FOR UNKNOWN INDICATION

REACTIONS (10)
  - Fatigue [Not Recovered/Not Resolved]
  - Musculoskeletal stiffness [Unknown]
  - Joint swelling [Recovering/Resolving]
  - Erythema [Recovering/Resolving]
  - Pain [Unknown]
  - Rheumatoid arthritis [Not Recovered/Not Resolved]
  - Pain in extremity [Not Recovered/Not Resolved]
  - Arthralgia [Not Recovered/Not Resolved]
  - Pain in extremity [Not Recovered/Not Resolved]
  - Arthralgia [Not Recovered/Not Resolved]
